FAERS Safety Report 10357019 (Version 4)
Quarter: 2014Q3

REPORT INFORMATION
  Report Type: Spontaneous
  Country: JP (occurrence: JP)
  Receive Date: 20140801
  Receipt Date: 20140908
  Transmission Date: 20150326
  Serious: Yes (Other)
  Sender: FDA-Public Use
  Company Number: JP-JNJFOC-20140718274

PATIENT
  Age: 87 Year
  Sex: Male

DRUGS (11)
  1. LANSOPRAZOLE. [Concomitant]
     Active Substance: LANSOPRAZOLE
     Route: 048
  2. CELECOX [Concomitant]
     Active Substance: CELECOXIB
     Route: 048
  3. FOLIAMIN [Concomitant]
     Active Substance: FOLIC ACID
     Route: 048
  4. PREDNISOLONE. [Concomitant]
     Active Substance: PREDNISOLONE
     Route: 048
  5. HOCHU-EKKI-TO [Concomitant]
     Active Substance: UNSPECIFIED INGREDIENT
     Route: 048
  6. TRAMCET [Suspect]
     Active Substance: ACETAMINOPHEN\TRAMADOL
     Indication: PAIN
     Route: 048
     Dates: start: 20140717, end: 20140722
  7. REBAMIPIDE [Concomitant]
     Active Substance: REBAMIPIDE
     Route: 048
  8. PREDNISOLONE. [Concomitant]
     Active Substance: PREDNISOLONE
     Route: 048
  9. LOXONIN [Concomitant]
     Active Substance: LOXOPROFEN SODIUM
     Route: 061
  10. MEIACT [Concomitant]
     Active Substance: CEFDITOREN PIVOXIL
     Route: 048
  11. DOGMATYL [Concomitant]
     Active Substance: SULPIRIDE
     Route: 048

REACTIONS (8)
  - Nervous system disorder [Recovering/Resolving]
  - Dysarthria [Recovering/Resolving]
  - Abasia [Recovering/Resolving]
  - Abulia [Recovering/Resolving]
  - Decreased appetite [Recovering/Resolving]
  - Dysphagia [Recovering/Resolving]
  - Mobility decreased [Recovering/Resolving]
  - Amnesia [Recovering/Resolving]

NARRATIVE: CASE EVENT DATE: 20140722
